FAERS Safety Report 16940056 (Version 2)
Quarter: 2019Q4

REPORT INFORMATION
  Report Type: Report from Study
  Country: CH (occurrence: CH)
  Receive Date: 20191021
  Receipt Date: 20191106
  Transmission Date: 20200122
  Serious: No
  Sender: FDA-Public Use
  Company Number: CH-BEH-2019108303

PATIENT
  Sex: Male

DRUGS (1)
  1. HIZENTRA [Suspect]
     Active Substance: HUMAN IMMUNOGLOBULIN G
     Indication: IMMUNODEFICIENCY
     Dosage: 80 MILLILITER (4 X 20ML) / (4 X 4G), QW
     Route: 058
     Dates: start: 20120130

REACTIONS (1)
  - Injection site hypertrophy [Not Recovered/Not Resolved]

NARRATIVE: CASE EVENT DATE: 20190401
